FAERS Safety Report 24935435 (Version 1)
Quarter: 2025Q1

REPORT INFORMATION
  Report Type: Spontaneous
  Country: US (occurrence: US)
  Receive Date: 20250206
  Receipt Date: 20250206
  Transmission Date: 20250409
  Serious: No
  Sender: ZYDUS PHARM
  Company Number: US-CADILA HEALTHCARE LIMITED-US-ZYDUS-117328

PATIENT

DRUGS (1)
  1. AMBRISENTAN [Suspect]
     Active Substance: AMBRISENTAN
     Indication: Product used for unknown indication
     Route: 065
     Dates: start: 20241217

REACTIONS (4)
  - Epigastric discomfort [Unknown]
  - Vomiting [Unknown]
  - Product use issue [Unknown]
  - Flatulence [Unknown]

NARRATIVE: CASE EVENT DATE: 20241201
